FAERS Safety Report 8505188-9 (Version None)
Quarter: 2012Q3

REPORT INFORMATION
  Report Type: 
  Country: None (occurrence: None)
  Receive Date: 20120712
  Receipt Date: 20120709
  Transmission Date: 20120928
  Serious: Yes (Death)
  Sender: FDA-Public Use
  Company Number: VE-PFIZER INC-2012165141

PATIENT
  Sex: Male

DRUGS (3)
  1. NORVASC [Suspect]
  2. ZOLOFT [Concomitant]
  3. LIPITOR [Concomitant]

REACTIONS (1)
  - DEATH [None]
